FAERS Safety Report 8381813-0 (Version None)
Quarter: 2012Q2

REPORT INFORMATION
  Report Type: 
  Country: None (occurrence: None)
  Receive Date: 20120522
  Receipt Date: 20120522
  Transmission Date: 20120825
  Serious: No
  Sender: FDA-Public Use
  Company Number: None

PATIENT
  Sex: Female
  Weight: 77.1115 kg

DRUGS (1)
  1. DYSPORT [Suspect]

REACTIONS (6)
  - PRODUCT SUBSTITUTION ISSUE [None]
  - VISUAL IMPAIRMENT [None]
  - HYPERSENSITIVITY [None]
  - ERYTHEMA [None]
  - EYELID PTOSIS [None]
  - EYELID OEDEMA [None]
